FAERS Safety Report 5689775-1 (Version None)
Quarter: 2008Q1

REPORT INFORMATION
  Report Type: 
  Country: None (occurrence: None)
  Receive Date: 20080328
  Receipt Date: 20080312
  Transmission Date: 20080703
  Serious: Yes (Hospitalization)
  Sender: FDA-Public Use
  Company Number: 2008EU000557

PATIENT
  Age: 21 Year
  Sex: Female

DRUGS (1)
  1. PROTOPIC [Suspect]
     Indication: DERMATITIS ATOPIC
     Dosage: 0.1% UID/QD, TOPICAL
     Route: 061
     Dates: start: 20080311, end: 20080311

REACTIONS (8)
  - APPLICATION SITE IRRITATION [None]
  - ERYTHEMA [None]
  - FEELING COLD [None]
  - PARAESTHESIA [None]
  - PERIPHERAL COLDNESS [None]
  - PULSE PRESSURE DECREASED [None]
  - SYNCOPE [None]
  - SYNCOPE VASOVAGAL [None]
